FAERS Safety Report 23376163 (Version 4)
Quarter: 2024Q3

REPORT INFORMATION
  Report Type: Spontaneous
  Country: US (occurrence: US)
  Receive Date: 20240108
  Receipt Date: 20240813
  Transmission Date: 20241017
  Serious: Yes (Other)
  Sender: SANOFI AVENTIS
  Company Number: US-SA-SAC20231229000997

PATIENT
  Age: 59 Year
  Sex: Male
  Weight: 105 kg

DRUGS (1)
  1. DUPIXENT [Suspect]
     Active Substance: DUPILUMAB
     Indication: Neurodermatitis
     Dosage: 300 MG, QOW
     Route: 058
     Dates: start: 202308

REACTIONS (10)
  - Leukaemia [Unknown]
  - Immunodeficiency [Unknown]
  - Impaired healing [Unknown]
  - Skin mass [Not Recovered/Not Resolved]
  - Rhinitis [Recovered/Resolved]
  - Fall [Recovering/Resolving]
  - Ligament sprain [Recovering/Resolving]
  - Stress at work [Recovering/Resolving]
  - Pruritus [Not Recovered/Not Resolved]
  - Neurodermatitis [Recovering/Resolving]

NARRATIVE: CASE EVENT DATE: 20240101
